FAERS Safety Report 21927861 (Version 1)
Quarter: 2023Q1

REPORT INFORMATION
  Report Type: Spontaneous
  Country: US (occurrence: None)
  Receive Date: 20230130
  Receipt Date: 20230130
  Transmission Date: 20230418
  Serious: Yes (Other)
  Sender: FDA-Public Use
  Company Number: None

PATIENT
  Age: 54 Year
  Sex: Female
  Weight: 54 kg

DRUGS (1)
  1. NITROFURANTOIN [Suspect]
     Active Substance: NITROFURANTOIN
     Indication: Urinary tract infection
     Dates: start: 20221128, end: 20221202

REACTIONS (7)
  - Arthralgia [None]
  - Myalgia [None]
  - Pain in extremity [None]
  - Asthenia [None]
  - Hypokinesia [None]
  - Joint swelling [None]
  - Autoimmune disorder [None]

NARRATIVE: CASE EVENT DATE: 20221128
